FAERS Safety Report 6887047-0 (Version None)
Quarter: 2010Q3

REPORT INFORMATION
  Report Type: 
  Country: None (occurrence: None)
  Receive Date: 20100708
  Receipt Date: 20100305
  Transmission Date: 20110219
  Serious: Yes (Other)
  Sender: FDA-Public Use
  Company Number: 2010029149

PATIENT
  Age: 45 Year
  Sex: Female
  Weight: 56 kg

DRUGS (3)
  1. CHANTIX [Suspect]
     Indication: SMOKING CESSATION THERAPY
     Dosage: 0.5 MG, 1X/DAY, ORAL
     Route: 048
     Dates: end: 20100227
  2. KLONOPIN [Concomitant]
  3. TRAZODONE HCL [Concomitant]

REACTIONS (5)
  - ABNORMAL DREAMS [None]
  - APATHY [None]
  - DEPRESSION [None]
  - PARANOIA [None]
  - SUICIDAL IDEATION [None]
